FAERS Safety Report 9394938 (Version 1)
Quarter: 2013Q3

REPORT INFORMATION
  Report Type: Spontaneous
  Country: US (occurrence: US)
  Receive Date: 20130711
  Receipt Date: 20130711
  Transmission Date: 20140515
  Serious: No
  Sender: FDA-Public Use
  Company Number: US-COVIDIEN/TYCO HEALTHCARE/MALLINCKRODT-T201203544

PATIENT
  Age: 24 Year
  Sex: Male
  Weight: 72.56 kg

DRUGS (6)
  1. OXYCODONE [Suspect]
     Indication: BACK PAIN
     Dosage: 5 MG, Q 6 HRS
     Route: 048
     Dates: start: 20120917
  2. FLEXERIL                           /00428402/ [Concomitant]
     Dosage: UNK
  3. BUSPAR [Concomitant]
     Dosage: UNK
  4. TYLENOL #3 [Concomitant]
     Dosage: UNK
     Dates: end: 20120916
  5. CYPROHEPTADINE [Concomitant]
     Dosage: UNK
  6. PROTONIX [Concomitant]
     Dosage: UNK

REACTIONS (1)
  - Stomatitis [Not Recovered/Not Resolved]
